FAERS Safety Report 8347683-1 (Version None)
Quarter: 2012Q2

REPORT INFORMATION
  Report Type: 
  Country: None (occurrence: None)
  Receive Date: 20120509
  Receipt Date: 20120503
  Transmission Date: 20120825
  Serious: Yes (Other)
  Sender: FDA-Public Use
  Company Number: FR-MERCK-1205FRA00026

PATIENT
  Sex: Female

DRUGS (9)
  1. REPAGLINIDE [Suspect]
     Indication: DIABETES MELLITUS
     Route: 065
     Dates: end: 20110101
  2. RISPERIDONE [Suspect]
     Indication: BIPOLAR DISORDER
     Route: 065
     Dates: end: 20110101
  3. METFORMIN HYDROCHLORIDE AND VILDAGLIPTIN [Suspect]
     Indication: DIABETES MELLITUS
     Route: 065
     Dates: end: 20110101
  4. METFFORMIN HYDROCHLORIDE [Suspect]
     Indication: DIABETES MELLITUS
     Route: 065
     Dates: end: 20110101
  5. DIVALPROEX SODIUM [Suspect]
     Indication: BIPOLAR DISORDER
     Route: 065
     Dates: end: 20110101
  6. JANUVIA [Suspect]
     Indication: DIABETES MELLITUS
     Route: 048
     Dates: end: 20110101
  7. ARIPIPRAZOLE [Suspect]
     Indication: BIPOLAR DISORDER
     Route: 065
     Dates: start: 19950101, end: 20110101
  8. GLICLAZIDE [Suspect]
     Indication: DIABETES MELLITUS
     Route: 065
     Dates: end: 20110101
  9. BENFLUOREX HYDROCHLORIDE [Suspect]
     Indication: DIABETES MELLITUS
     Route: 065
     Dates: end: 20110101

REACTIONS (1)
  - HEPATIC CIRRHOSIS [None]
